FAERS Safety Report 7084630-7 (Version None)
Quarter: 2010Q4

REPORT INFORMATION
  Report Type: 
  Country: None (occurrence: None)
  Receive Date: 20101104
  Receipt Date: 20101026
  Transmission Date: 20110411
  Serious: Yes (Other)
  Sender: FDA-Public Use
  Company Number: PHHY2010NL61333

PATIENT
  Sex: Male

DRUGS (2)
  1. RASILEZ [Suspect]
     Indication: HYPERTENSION
     Dosage: 150 MG, PER DAY
     Route: 048
     Dates: start: 20090224, end: 20100905
  2. ACENOCOUMAROL [Concomitant]
     Dosage: 1 MG, UNK
     Dates: start: 20080310

REACTIONS (3)
  - ILEUS [None]
  - STOMA CARE [None]
  - VOMITING [None]
